FAERS Safety Report 9022467 (Version 7)
Quarter: 2014Q1

REPORT INFORMATION
  Report Type: Spontaneous
  Country: US (occurrence: US)
  Receive Date: 20130118
  Receipt Date: 20140102
  Transmission Date: 20141002
  Serious: Yes (Hospitalization, Other)
  Sender: FDA-Public Use
  Company Number: US-PFIZER INC-2013012900

PATIENT
  Age: 45 Year
  Sex: Female
  Weight: 52.61 kg

DRUGS (10)
  1. ELELYSO [Suspect]
     Indication: GAUCHER^S DISEASE
     Dosage: 3200 UNITS, CYCLIC (EVERY 2 WEEKS)
     Route: 042
     Dates: end: 201208
  2. ELELYSO [Suspect]
     Indication: GAUCHER^S DISEASE
     Dosage: 3200 UNITS, CYCLIC (EVERY 2 WEEKS)
     Route: 042
     Dates: start: 201209
  3. ELELYSO [Suspect]
     Dosage: 3200 UNITS, EVERY 2 WEEKS
     Route: 042
     Dates: start: 20121009, end: 201309
  4. ELELYSO [Suspect]
     Dosage: 3200 UNITS, EVERY 2 WEEKS
     Route: 042
     Dates: start: 20121120
  5. ELELYSO [Suspect]
     Dosage: 60 UNITS/KG, 3200 UNITS, EVERY 2 WEEKS
     Route: 042
     Dates: start: 201301
  6. ZAVESCA [Suspect]
     Dosage: UNK
  7. LOSARTAN [Concomitant]
     Dosage: 50 MG, UNK
  8. PANTOPRAZOLE [Concomitant]
     Dosage: 40 MG, UNK
  9. ESTRADIOL [Concomitant]
     Dosage: 1 MG, UNK
  10. PRISTIQ [Concomitant]
     Dosage: 50 MG, 1X/DAY

REACTIONS (20)
  - Infusion related reaction [Unknown]
  - Abdominal pain upper [Unknown]
  - Vomiting [Unknown]
  - Flushing [Recovered/Resolved]
  - Diarrhoea [Recovered/Resolved]
  - Nausea [Unknown]
  - Lipase increased [Unknown]
  - Blood potassium decreased [Unknown]
  - Heart rate abnormal [Unknown]
  - Hyperhidrosis [Unknown]
  - Incorrect drug administration rate [Unknown]
  - Neuropathy peripheral [Not Recovered/Not Resolved]
  - Onychoclasis [Unknown]
  - Weight increased [Not Recovered/Not Resolved]
  - Weight decreased [Unknown]
  - Abdominal discomfort [Unknown]
  - Constipation [Not Recovered/Not Resolved]
  - Gastrointestinal disorder [Not Recovered/Not Resolved]
  - Gastrooesophageal reflux disease [Not Recovered/Not Resolved]
  - Abdominal discomfort [Unknown]
